FAERS Safety Report 5396702-3 (Version None)
Quarter: 2007Q3

REPORT INFORMATION
  Report Type: 
  Country: None (occurrence: None)
  Receive Date: 20070725
  Receipt Date: 20061024
  Transmission Date: 20080115
  Serious: No
  Sender: FDA-Public Use
  Company Number: US-AMGEN-KDL197838

PATIENT
  Sex: Male

DRUGS (11)
  1. EPOGEN [Suspect]
     Indication: DIALYSIS
     Dates: start: 20060918, end: 20061016
  2. BACTRIM [Concomitant]
  3. CYCLOSPORINE [Concomitant]
  4. TOPROL-XL [Concomitant]
  5. NORVASC [Concomitant]
  6. PREDNISONE [Concomitant]
  7. HYDRALAZINE HYDROCHLORIDE [Concomitant]
  8. PHOSLO [Concomitant]
  9. LASIX [Concomitant]
  10. BICITRA [Concomitant]
  11. CYTOXAN [Concomitant]

REACTIONS (2)
  - CHILLS [None]
  - PYREXIA [None]
